FAERS Safety Report 5551042-4 (Version None)
Quarter: 2007Q4

REPORT INFORMATION
  Report Type: 
  Country: None (occurrence: None)
  Receive Date: 20071212
  Receipt Date: 20071130
  Transmission Date: 20080405
  Serious: Yes (Hospitalization, Other)
  Sender: FDA-Public Use
  Company Number: US-TYCO HEALTHCARE/MALLINCKRODT-T200700970

PATIENT

DRUGS (5)
  1. ACETAMINOPHEN AND OXYCODONE HCL [Suspect]
     Indication: ARTHRALGIA
     Dosage: 2 TABLETS EVERY 8 HOURS
     Route: 048
     Dates: start: 20020101, end: 20070401
  2. OXYCODONE AND ACETAMINOPHEN [Suspect]
     Indication: ARTHRALGIA
     Dosage: 2 TABLETS EVERY 6 HOURS
     Route: 048
     Dates: start: 20070601
  3. VALIUM [Suspect]
     Indication: ANXIETY
     Dosage: 1 TABLET QHS
     Route: 048
     Dates: start: 20071112
  4. PRILOSEC                           /00661201/ [Concomitant]
     Route: 048
     Dates: start: 19970101, end: 20060101
  5. TYLENOL (CAPLET) [Concomitant]
     Indication: BREAKTHROUGH PAIN

REACTIONS (5)
  - CHROMATURIA [None]
  - DIARRHOEA [None]
  - THROMBOSIS [None]
  - URINE OUTPUT DECREASED [None]
  - VOMITING [None]
